FAERS Safety Report 5898149-X (Version None)
Quarter: 2008Q3

REPORT INFORMATION
  Report Type: 
  Country: None (occurrence: None)
  Receive Date: 20080925
  Receipt Date: 20080915
  Transmission Date: 20090109
  Serious: Yes (Hospitalization)
  Sender: FDA-Public Use
  Company Number: IT-GILEAD-2008-0017973

PATIENT
  Sex: Male

DRUGS (2)
  1. ATRIPLA [Suspect]
     Route: 048
     Dates: start: 20080710, end: 20080827
  2. ATRIPLA [Suspect]
     Dates: start: 20080901

REACTIONS (3)
  - ANGINA PECTORIS [None]
  - BURKITT'S LYMPHOMA [None]
  - THROMBOCYTOPENIA [None]
